FAERS Safety Report 7650662-0 (Version None)
Quarter: 2011Q3

REPORT INFORMATION
  Report Type: 
  Country: None (occurrence: None)
  Receive Date: 20110802
  Receipt Date: 20110728
  Transmission Date: 20111222
  Serious: Yes (Death, Other)
  Sender: FDA-Public Use
  Company Number: PHHY2011GB42618

PATIENT
  Age: 62 Year
  Sex: Male

DRUGS (9)
  1. ADCAL-D3 [Concomitant]
     Dosage: UNK UKN, UNK
  2. LANSOPRAZOLE [Concomitant]
     Dosage: UNK UKN, UNK
  3. AZITHROMYCIN [Concomitant]
     Dosage: UNK UKN, UNK
  4. HUMULIN R [Concomitant]
     Dosage: UNK UKN, UNK
  5. ACETAMINOPHEN AND CODEINE PHOSPHATE [Concomitant]
     Dosage: UNK UKN, UNK
  6. LEVOFLOXACIN [Suspect]
     Indication: LOWER RESPIRATORY TRACT INFECTION
     Dosage: 500 MG, BID
     Route: 048
     Dates: start: 20100826, end: 20100831
  7. CARBOCISTEINE [Concomitant]
     Dosage: UNK UKN, UNK
  8. PREDNISOLONE [Concomitant]
     Dosage: UNK UKN, UNK
  9. ALBUTEROL [Concomitant]
     Dosage: UNK UKN, UNK

REACTIONS (3)
  - PNEUMONIA [None]
  - HEPATORENAL FAILURE [None]
  - PERIPHERAL ISCHAEMIA [None]
